FAERS Safety Report 5849083-2 (Version None)
Quarter: 2008Q3

REPORT INFORMATION
  Report Type: 
  Country: None (occurrence: None)
  Receive Date: 20080819
  Receipt Date: 20080812
  Transmission Date: 20090109
  Serious: Yes (Other)
  Sender: FDA-Public Use
  Company Number: PHEH2008US07079

PATIENT
  Sex: Female

DRUGS (3)
  1. AREDIA [Suspect]
     Indication: RESORPTION BONE INCREASED
     Dosage: UNK, UNK
  2. AREDIA [Suspect]
     Indication: OSTEOPOROSIS
  3. AREDIA [Suspect]
     Indication: NEOPLASM MALIGNANT

REACTIONS (4)
  - ANXIETY [None]
  - DISABILITY [None]
  - OSTEONECROSIS [None]
  - PAIN [None]
